FAERS Safety Report 4784563-2 (Version None)
Quarter: 2005Q3

REPORT INFORMATION
  Report Type: 
  Country: None (occurrence: None)
  Receive Date: 20050928
  Receipt Date: 20050913
  Transmission Date: 20060218
  Serious: Yes (Hospitalization)
  Sender: FDA-Public Use
  Company Number: 2005S1008971

PATIENT
  Age: 67 Year
  Sex: Female

DRUGS (2)
  1. FENTANYL [Suspect]
     Dosage: TDER
     Route: 062
  2. ANTIHYPERTENSIVES [Concomitant]

REACTIONS (1)
  - BLOOD PRESSURE DECREASED [None]
